FAERS Safety Report 6219298-2 (Version None)
Quarter: 2009Q2

REPORT INFORMATION
  Report Type: 
  Country: None (occurrence: None)
  Receive Date: 20090609
  Receipt Date: 20090603
  Transmission Date: 20091009
  Serious: Yes (Other)
  Sender: FDA-Public Use
  Company Number: US-ASTRAZENECA-2009UW10421

PATIENT
  Age: 66 Year
  Sex: Male

DRUGS (3)
  1. CASODEX [Suspect]
     Indication: PROSTATIC SPECIFIC ANTIGEN INCREASED
     Route: 048
     Dates: start: 20071101, end: 20090408
  2. TAMOXIFEN CITRATE [Concomitant]
  3. PLAQUENIL [Concomitant]
     Route: 048
     Dates: start: 20050101

REACTIONS (7)
  - ABNORMAL FAECES [None]
  - CHROMATURIA [None]
  - FATIGUE [None]
  - HOT FLUSH [None]
  - HYPOTONIA [None]
  - MYALGIA [None]
  - WEIGHT INCREASED [None]
